FAERS Safety Report 10349287 (Version 1)
Quarter: 2014Q3

REPORT INFORMATION
  Report Type: Spontaneous
  Country: US (occurrence: US)
  Receive Date: 20140730
  Receipt Date: 20140730
  Transmission Date: 20150326
  Serious: No
  Sender: FDA-Public Use
  Company Number: US-BIOGENIDEC-2014BI073850

PATIENT
  Sex: Female

DRUGS (3)
  1. AVONEX [Suspect]
     Active Substance: INTERFERON BETA-1A
     Indication: MULTIPLE SCLEROSIS
     Route: 030
     Dates: start: 20140608
  2. AVONEX [Suspect]
     Active Substance: INTERFERON BETA-1A
     Indication: MULTIPLE SCLEROSIS
     Route: 030
     Dates: start: 20070730, end: 20130513
  3. TECFIDERA [Concomitant]
     Active Substance: DIMETHYL FUMARATE
     Indication: MULTIPLE SCLEROSIS
     Dates: start: 20130515, end: 20140516

REACTIONS (8)
  - General symptom [Unknown]
  - Headache [Not Recovered/Not Resolved]
  - Multiple sclerosis [Unknown]
  - Sensory disturbance [Not Recovered/Not Resolved]
  - Cognitive disorder [Unknown]
  - Balance disorder [Recovered/Resolved]
  - Multiple sclerosis relapse [Unknown]
  - Sinus disorder [Not Recovered/Not Resolved]
